FAERS Safety Report 19805100 (Version 3)
Quarter: 2021Q4

REPORT INFORMATION
  Report Type: Report from Study
  Country: BE (occurrence: BE)
  Receive Date: 20210909
  Receipt Date: 20211129
  Transmission Date: 20220303
  Serious: Yes (Other)
  Sender: FDA-Public Use
  Company Number: BE-ABBVIE-21K-013-4058376-00

PATIENT
  Sex: Male
  Weight: 82 kg

DRUGS (7)
  1. CARBIDOPA\LEVODOPA [Suspect]
     Active Substance: CARBIDOPA\LEVODOPA
     Indication: Parkinson^s disease
     Route: 050
     Dates: start: 20120917
  2. CARBIDOPA\LEVODOPA [Suspect]
     Active Substance: CARBIDOPA\LEVODOPA
     Dosage: MD 9.0 ML; CD 4.1ML/H; ED 3.1 ML; DURING 16 HRS
     Route: 050
     Dates: start: 20210218, end: 2021
  3. CARBIDOPA\LEVODOPA [Suspect]
     Active Substance: CARBIDOPA\LEVODOPA
     Dosage: MD 9.0 ML; CD 4.1ML/H; ED 3.1 ML; DURING 16 HRS
     Route: 050
     Dates: start: 2021, end: 2021
  4. CARBIDOPA\LEVODOPA [Suspect]
     Active Substance: CARBIDOPA\LEVODOPA
     Dosage: MD 9.0 ML; CD 4.1ML/H; ED 3.1 ML; DURING 16 HRS
     Route: 050
     Dates: start: 2021
  5. PRAMIPEXOLE [Concomitant]
     Active Substance: PRAMIPEXOLE
     Indication: Product used for unknown indication
     Dosage: AT 8H, 12H, 16H, 20H
  6. BENSERAZIDE\LEVODOPA [Concomitant]
     Active Substance: BENSERAZIDE\LEVODOPA
     Indication: Product used for unknown indication
     Dosage: AT 22.00
  7. STALEVO [Concomitant]
     Active Substance: CARBIDOPA\ENTACAPONE\LEVODOPA
     Indication: Product used for unknown indication
     Dosage: AT 08.00,10.30-13.00,15:30,19.00

REACTIONS (4)
  - Embedded device [Recovered/Resolved]
  - Device expulsion [Not Recovered/Not Resolved]
  - Device difficult to use [Recovered/Resolved]
  - Off label use [Recovered/Resolved]
